FAERS Safety Report 7629381-2 (Version None)
Quarter: 2011Q3

REPORT INFORMATION
  Report Type: 
  Country: None (occurrence: None)
  Receive Date: 20110722
  Receipt Date: 20110719
  Transmission Date: 20111222
  Serious: Yes (Other)
  Sender: FDA-Public Use
  Company Number: US-SANOFI-AVENTIS-2011SA046188

PATIENT
  Age: 72 Year
  Sex: Male

DRUGS (1)
  1. PLAVIX [Suspect]
     Indication: STENT PLACEMENT
     Route: 048
     Dates: start: 20110103

REACTIONS (12)
  - DECREASED APPETITE [None]
  - CONFUSIONAL STATE [None]
  - ABDOMINAL PAIN [None]
  - THROMBOTIC THROMBOCYTOPENIC PURPURA [None]
  - PURPURA [None]
  - JAUNDICE [None]
  - ABDOMINAL HERNIA [None]
  - PYREXIA [None]
  - RECTAL HAEMORRHAGE [None]
  - WEIGHT DECREASED [None]
  - SKIN DISCOLOURATION [None]
  - FATIGUE [None]
